FAERS Safety Report 6348502-5 (Version None)
Quarter: 2009Q3

REPORT INFORMATION
  Report Type: 
  Country: None (occurrence: None)
  Receive Date: 20090911
  Receipt Date: 20070518
  Transmission Date: 20100115
  Serious: Yes (Other)
  Sender: FDA-Public Use
  Company Number: US-ASTRAZENECA-2006UW26321

PATIENT
  Sex: Female
  Weight: 95.8 kg

DRUGS (19)
  1. SEROQUEL [Suspect]
     Indication: SCHIZOPHRENIA
     Route: 048
     Dates: start: 20020101
  2. SEROQUEL [Suspect]
     Indication: BIPOLAR DISORDER
     Route: 048
     Dates: start: 20020101
  3. SEROQUEL [Suspect]
     Indication: DEPRESSION
     Route: 048
     Dates: start: 20020101
  4. SEROQUEL [Suspect]
     Route: 048
  5. SEROQUEL [Suspect]
     Route: 048
  6. SEROQUEL [Suspect]
     Route: 048
  7. GEODON [Concomitant]
  8. THORAZINE [Concomitant]
  9. ZYPREXA [Concomitant]
  10. HYDROCODONE [Concomitant]
     Dosage: 5/500 MG
     Dates: start: 20020101
  11. DIAZEPAM [Concomitant]
     Dates: start: 20020101
  12. EFFEXOR XR [Concomitant]
     Dates: start: 20020101
  13. GLUCOPHAGE XR [Concomitant]
     Dates: start: 20020101
  14. DEPAKOTE [Concomitant]
     Dates: start: 20020101
  15. FUROSEMIDE [Concomitant]
     Dates: start: 20020101
  16. SYNTHROID [Concomitant]
     Dosage: 300 MICROGRAM DAILY
     Dates: start: 20020101
  17. TRAZODONE HCL [Concomitant]
     Dates: start: 20020101
  18. ZANAFLEX [Concomitant]
     Dates: start: 20020101
  19. VIOXX [Concomitant]
     Dates: start: 20020101

REACTIONS (3)
  - DIABETES MELLITUS [None]
  - MULTIPLE INJURIES [None]
  - POLYNEUROPATHY [None]
